FAERS Safety Report 9084573 (Version 1)
Quarter: 2013Q1

REPORT INFORMATION
  Report Type: Report from Study
  Country: CA (occurrence: CA)
  Receive Date: 20130131
  Receipt Date: 20130131
  Transmission Date: 20140127
  Serious: Yes (Other)
  Sender: FDA-Public Use
  Company Number: CA-JNJFOC-20130111547

PATIENT
  Sex: Female
  Weight: 122.47 kg

DRUGS (4)
  1. REMICADE [Suspect]
     Indication: CROHN^S DISEASE
     Dosage: INITIATED INFLIXIMAB ABOUT A YEAR
     Route: 042
  2. RABEPRAZOLE [Concomitant]
     Indication: GASTRIC DISORDER
     Route: 065
  3. LOPERAMIDE [Concomitant]
     Indication: DIARRHOEA
     Route: 065
  4. LOPERAMIDE [Concomitant]
     Indication: CROHN^S DISEASE
     Route: 065

REACTIONS (13)
  - Bipolar I disorder [Not Recovered/Not Resolved]
  - Abdominal hernia [Not Recovered/Not Resolved]
  - Raynaud^s phenomenon [Not Recovered/Not Resolved]
  - Malaise [Unknown]
  - Drug ineffective [Unknown]
  - Infusion related reaction [Unknown]
  - Back pain [Unknown]
  - Fatigue [Unknown]
  - Somnolence [Unknown]
  - Nausea [Unknown]
  - Feeling abnormal [Unknown]
  - Nasopharyngitis [Unknown]
  - Influenza like illness [Unknown]
